FAERS Safety Report 4806244-9 (Version None)
Quarter: 2005Q4

REPORT INFORMATION
  Report Type: 
  Country: None (occurrence: None)
  Receive Date: 20051021
  Receipt Date: 20051012
  Transmission Date: 20060501
  Serious: Yes (Death)
  Sender: FDA-Public Use
  Company Number: US-MERCK-0510USA06743

PATIENT
  Age: 74 Year
  Sex: Male

DRUGS (1)
  1. PRIMAXIN [Suspect]
     Indication: SURGERY
     Route: 042
     Dates: start: 19971210

REACTIONS (1)
  - DEATH [None]
